FAERS Safety Report 9147932 (Version 1)
Quarter: 2013Q1

REPORT INFORMATION
  Report Type: Spontaneous
  Country: US (occurrence: US)
  Receive Date: 20130304
  Receipt Date: 20130304
  Transmission Date: 20140127
  Serious: Yes (Other)
  Sender: FDA-Public Use
  Company Number: US-RB-050513-13

PATIENT
  Sex: Female

DRUGS (6)
  1. SUBOXONE [Suspect]
     Indication: DRUG DEPENDENCE
     Dosage: DOSAGE DETAILS NOT SPECIFIED
     Route: 064
     Dates: end: 20120904
  2. SUBUTEX [Suspect]
     Indication: DRUG DEPENDENCE
     Route: 064
     Dates: start: 20120905, end: 20121204
  3. SUBUTEX [Suspect]
     Route: 063
     Dates: start: 201212
  4. ZOLOFT [Suspect]
     Indication: DEPRESSION
     Route: 064
  5. ZOLOFT [Suspect]
     Route: 063
     Dates: start: 201212
  6. NICOTINE [Suspect]
     Indication: NICOTINE DEPENDENCE
     Dosage: HALF A PACK PER DAY
     Route: 064
     Dates: start: 2011, end: 20121204

REACTIONS (6)
  - Foetal exposure during pregnancy [Recovered/Resolved]
  - Jaundice neonatal [Recovered/Resolved]
  - Exposure during breast feeding [Unknown]
  - Maternal drugs affecting foetus [None]
  - Foetal exposure during pregnancy [None]
  - Caesarean section [None]
